FAERS Safety Report 11060544 (Version 3)
Quarter: 2015Q2

REPORT INFORMATION
  Report Type: Spontaneous
  Country: JP (occurrence: JP)
  Receive Date: 20150423
  Receipt Date: 20150617
  Transmission Date: 20150821
  Serious: Yes (Other)
  Sender: FDA-Public Use
  Company Number: JP-ASTRAZENECA-2015SE36265

PATIENT
  Age: 58 Year
  Sex: Male

DRUGS (5)
  1. FAMOTER [Concomitant]
     Route: 048
  2. NIFELANTERN CR [Concomitant]
     Active Substance: NIFEDIPINE
     Route: 048
  3. FORXIGA [Suspect]
     Active Substance: DAPAGLIFLOZIN
     Indication: DIABETES MELLITUS
     Route: 048
     Dates: start: 20150228
  4. GLACTIV [Concomitant]
     Active Substance: SITAGLIPTIN
     Route: 048
  5. GLICLAZIDE [Concomitant]
     Active Substance: GLICLAZIDE
     Route: 048

REACTIONS (2)
  - Blood glucose increased [Unknown]
  - Cerebral infarction [Unknown]
